FAERS Safety Report 5906723-7 (Version None)
Quarter: 2008Q4

REPORT INFORMATION
  Report Type: 
  Country: None (occurrence: None)
  Receive Date: 20081002
  Receipt Date: 20080926
  Transmission Date: 20090506
  Serious: Yes (Hospitalization)
  Sender: FDA-Public Use
  Company Number: US-GILEAD-2008-0017535

PATIENT
  Sex: Female
  Weight: 43.13 kg

DRUGS (8)
  1. LETAIRIS [Suspect]
     Indication: PULMONARY HYPERTENSION
     Route: 048
     Dates: start: 20080709, end: 20080722
  2. COUMADIN [Concomitant]
     Route: 048
  3. DIGOXIN [Concomitant]
     Route: 048
  4. ATENOLOL [Concomitant]
     Route: 048
  5. LASIX [Concomitant]
     Route: 048
  6. ZOLOFT [Concomitant]
     Route: 048
  7. PRANDIN [Concomitant]
     Route: 048
  8. MIRAPEX [Concomitant]
     Route: 048

REACTIONS (3)
  - DYSPNOEA [None]
  - OEDEMA PERIPHERAL [None]
  - PULMONARY CONGESTION [None]
